FAERS Safety Report 7595247-X (Version None)
Quarter: 2011Q2

REPORT INFORMATION
  Report Type: 
  Country: None (occurrence: None)
  Receive Date: 20110620
  Receipt Date: 20110407
  Transmission Date: 20111010
  Serious: Yes (Hospitalization)
  Sender: FDA-Public Use
  Company Number: UTC-005556

PATIENT
  Age: 56 Year
  Sex: Female
  Weight: 53.6 kg

DRUGS (5)
  1. REVATIO [Concomitant]
  2. DIURETICS [Concomitant]
  3. TYVASO [Suspect]
     Indication: PULMONARY ARTERIAL HYPERTENSION
     Dosage: 216 MCG (54 MCG, 4 IN 1 D), INHALATION;
     Route: 055
     Dates: start: 20100913
  4. TYVASO [Suspect]
     Dosage: 144 MCG (36 MCG, 4 IN 1 D), INHALATION
     Route: 055
     Dates: start: 20100928
  5. TRACLEER [Concomitant]

REACTIONS (8)
  - COUGH [None]
  - DYSPNOEA [None]
  - NAUSEA [None]
  - BRONCHITIS [None]
  - DYSGEUSIA [None]
  - OSTEITIS [None]
  - THROAT IRRITATION [None]
  - PAIN IN JAW [None]
